FAERS Safety Report 8368118-9 (Version None)
Quarter: 2012Q2

REPORT INFORMATION
  Report Type: 
  Country: None (occurrence: None)
  Receive Date: 20120517
  Receipt Date: 20120515
  Transmission Date: 20120825
  Serious: Yes (Other)
  Sender: FDA-Public Use
  Company Number: US-PFIZER INC-2012118565

PATIENT
  Sex: Female

DRUGS (5)
  1. XOPENEX [Concomitant]
     Indication: ASTHMA
     Dosage: 1.25 MG, 2X/DAY
  2. FLOVENT [Concomitant]
     Indication: ASTHMA
     Dosage: 250 UG, 2X/DAY
  3. MAXAIR [Concomitant]
     Indication: ASTHMA
     Dosage: UNK, AS NEEDED
  4. LIPITOR [Suspect]
     Indication: BLOOD CHOLESTEROL INCREASED
     Dosage: 20 MG, DAILY
     Route: 048
     Dates: start: 20050101
  5. ACETYLSALICYLIC ACID SRT [Suspect]
     Dosage: UNK

REACTIONS (12)
  - DYSSTASIA [None]
  - NUCLEAR MAGNETIC RESONANCE IMAGING BRAIN ABNORMAL [None]
  - FALL [None]
  - TRANSIENT ISCHAEMIC ATTACK [None]
  - FATIGUE [None]
  - CEREBRAL INFARCTION [None]
  - SPEECH DISORDER [None]
  - LACUNAR INFARCTION [None]
  - DISCOMFORT [None]
  - ACTIVITIES OF DAILY LIVING IMPAIRED [None]
  - FEELING ABNORMAL [None]
  - WEIGHT FLUCTUATION [None]
